FAERS Safety Report 11092196 (Version 1)
Quarter: 2015Q2

REPORT INFORMATION
  Report Type: Spontaneous
  Country: US (occurrence: US)
  Receive Date: 20150506
  Receipt Date: 20150506
  Transmission Date: 20150821
  Serious: No
  Sender: FDA-Public Use
  Company Number: US-ASTRAZENECA-2015SE39528

PATIENT
  Age: 57 Year
  Sex: Female
  Weight: 68 kg

DRUGS (5)
  1. SIMVASTATIN. [Concomitant]
     Active Substance: SIMVASTATIN
     Indication: BLOOD CHOLESTEROL ABNORMAL
     Route: 048
     Dates: start: 201311
  2. TRIAMPTERINE HCTZ [Concomitant]
     Indication: BLOOD PRESSURE ABNORMAL
     Dosage: 37.5-25MG, DAILY
     Route: 048
     Dates: start: 2004
  3. SIMVASTATIN. [Concomitant]
     Active Substance: SIMVASTATIN
     Indication: BLOOD CALCIUM INCREASED
     Route: 048
     Dates: start: 201311
  4. NEXIUM [Suspect]
     Active Substance: ESOMEPRAZOLE MAGNESIUM
     Indication: GASTROOESOPHAGEAL REFLUX DISEASE
     Route: 048
     Dates: end: 2013
  5. NEXIUM [Suspect]
     Active Substance: ESOMEPRAZOLE MAGNESIUM
     Indication: GASTROOESOPHAGEAL REFLUX DISEASE
     Route: 048
     Dates: start: 2013

REACTIONS (10)
  - Blood calcium increased [Unknown]
  - Dysphonia [Unknown]
  - Barrett^s oesophagus [Not Recovered/Not Resolved]
  - Dysphagia [Unknown]
  - Blood cholesterol increased [Unknown]
  - Gastritis [Unknown]
  - Helicobacter infection [Recovered/Resolved]
  - Abdominal pain upper [Unknown]
  - Osteopenia [Not Recovered/Not Resolved]
  - Hypothyroidism [Unknown]

NARRATIVE: CASE EVENT DATE: 201211
